FAERS Safety Report 17194746 (Version 1)
Quarter: 2020Q1

REPORT INFORMATION
  Report Type: Spontaneous
  Country: US (occurrence: US)
  Receive Date: 20191223
  Receipt Date: 20191223
  Transmission Date: 20200409
  Serious: Yes (Other)
  Sender: FDA-Public Use
  Company Number: None

PATIENT
  Age: 37 Year
  Sex: Female
  Weight: 65.25 kg

DRUGS (8)
  1. LO LOESTRIN FE [Concomitant]
     Active Substance: ETHINYL ESTRADIOL\NORETHINDRONE ACETATE
  2. GABAPENTIN. [Concomitant]
     Active Substance: GABAPENTIN
  3. EMGALITY [Suspect]
     Active Substance: GALCANEZUMAB-GNLM
     Indication: MIGRAINE
     Route: 030
     Dates: start: 20190506, end: 20191220
  4. DAILY VITAMIN [Concomitant]
     Active Substance: VITAMINS
  5. B2 [Concomitant]
  6. XANAX [Concomitant]
     Active Substance: ALPRAZOLAM
  7. EXCEDRIN [Concomitant]
     Active Substance: ACETAMINOPHEN\ASPIRIN\CAFFEINE
  8. MAGNESIUM [Concomitant]
     Active Substance: MAGNESIUM

REACTIONS (3)
  - Anxiety [None]
  - Weight increased [None]
  - Rash [None]

NARRATIVE: CASE EVENT DATE: 20190506
